FAERS Safety Report 24605888 (Version 1)
Quarter: 2024Q4

REPORT INFORMATION
  Report Type: Report from Study
  Country: US (occurrence: US)
  Receive Date: 20241111
  Receipt Date: 20241111
  Transmission Date: 20250114
  Serious: Yes (Hospitalization, Other)
  Sender: ABBVIE
  Company Number: US-ABBVIE-5996611

PATIENT
  Age: 32 Year
  Sex: Male

DRUGS (2)
  1. RINVOQ [Suspect]
     Active Substance: UPADACITINIB
     Indication: Colitis ulcerative
     Route: 048
     Dates: start: 20231103, end: 2024
  2. RINVOQ [Suspect]
     Active Substance: UPADACITINIB
     Indication: Colitis ulcerative
     Dosage: FORM STRENGTH: 30MG, THERAPY START DATE 2024
     Route: 048
     Dates: end: 202410

REACTIONS (4)
  - Colectomy [Unknown]
  - Investigation abnormal [Unknown]
  - Abdominal pain [Recovered/Resolved]
  - Stoma creation [Unknown]

NARRATIVE: CASE EVENT DATE: 20241001
